FAERS Safety Report 8965901 (Version 1)
Quarter: 2012Q4

REPORT INFORMATION
  Report Type: Report from Study
  Country: US (occurrence: US)
  Receive Date: 20121217
  Receipt Date: 20121217
  Transmission Date: 20130627
  Serious: No
  Sender: FDA-Public Use
  Company Number: US-ABBOTT-12P-163-1009635-00

PATIENT
  Sex: Female
  Weight: 79.45 kg

DRUGS (4)
  1. TRILIPIX [Suspect]
     Indication: BLOOD CHOLESTEROL INCREASED
     Dates: start: 2012, end: 2012
  2. GLYBURIDE [Concomitant]
     Indication: DIABETES MELLITUS
  3. INSULIN [Concomitant]
     Indication: DIABETES MELLITUS
  4. METOPROLOL [Concomitant]
     Indication: HYPERTENSION

REACTIONS (2)
  - Dizziness [Recovered/Resolved]
  - Asthenia [Recovered/Resolved]
